FAERS Safety Report 17882539 (Version 1)
Quarter: 2020Q2

REPORT INFORMATION
  Report Type: Spontaneous
  Country: US (occurrence: US)
  Receive Date: 20200610
  Receipt Date: 20200610
  Transmission Date: 20200714
  Serious: Yes (Hospitalization)
  Sender: FDA-Public Use
  Company Number: US-CHURCH + DWIGHT CO., INC.-2085634

PATIENT
  Age: 31 Year
  Sex: Female

DRUGS (1)
  1. NAIR [Suspect]
     Active Substance: CALCIUM HYDROXIDE\SODIUM HYDROXIDE
     Indication: DEPILATION
     Route: 061
     Dates: start: 20200416, end: 20200416

REACTIONS (11)
  - Dyspnoea [Recovered/Resolved]
  - Pyrexia [Recovered/Resolved]
  - White blood cell count increased [Recovered/Resolved]
  - Cellulitis [Recovered/Resolved]
  - Chemical burn [Recovering/Resolving]
  - Erythema [Recovered/Resolved]
  - Blood pressure decreased [Recovered/Resolved]
  - Blister [Recovered/Resolved]
  - Swelling [Recovered/Resolved]
  - Peripheral swelling [Recovered/Resolved]
  - Wound infection [Recovering/Resolving]

NARRATIVE: CASE EVENT DATE: 20200417
